FAERS Safety Report 20114240 (Version 1)
Quarter: 2021Q4

REPORT INFORMATION
  Report Type: Spontaneous
  Country: CA (occurrence: CA)
  Receive Date: 20211125
  Receipt Date: 20211125
  Transmission Date: 20220303
  Serious: Yes (Other)
  Sender: FDA-Public Use
  Company Number: CA-ABBVIE-21K-028-4176541-00

PATIENT
  Age: 52 Year
  Sex: Male

DRUGS (4)
  1. HUMIRA [Suspect]
     Active Substance: ADALIMUMAB
     Indication: Crohn^s disease
     Route: 058
  2. INFLECTRA [Suspect]
     Active Substance: INFLIXIMAB-DYYB
     Indication: Crohn^s disease
     Route: 042
  3. METHOTREXATE [Concomitant]
     Active Substance: METHOTREXATE
     Indication: Crohn^s disease
     Dosage: 1 DOSAGE FORM
  4. IMURAN [Concomitant]
     Active Substance: AZATHIOPRINE
     Indication: Crohn^s disease
     Dosage: 1 DOSAGE FORM

REACTIONS (15)
  - Intestinal haemorrhage [Unknown]
  - Intestinal ulcer [Unknown]
  - Colonoscopy abnormal [Unknown]
  - Crohn^s disease [Unknown]
  - Malaise [Unknown]
  - Gastrointestinal mucosa hyperaemia [Unknown]
  - Defaecation urgency [Unknown]
  - Drug ineffective [Unknown]
  - Anorectal disorder [Unknown]
  - Stenosis [Unknown]
  - Anorectal disorder [Unknown]
  - Gastrointestinal mucosa hyperaemia [Unknown]
  - C-reactive protein increased [Unknown]
  - Faecal calprotectin increased [Unknown]
  - Unevaluable event [Unknown]

NARRATIVE: CASE EVENT DATE: 20210101
